FAERS Safety Report 8859246 (Version 2)
Quarter: 2012Q4

REPORT INFORMATION
  Report Type: 
  Country: US (occurrence: US)
  Receive Date: 20121024
  Receipt Date: 20121121
  Transmission Date: 20130627
  Serious: Yes (Other)
  Sender: FDA-Public Use
  Company Number: US-SANOFI-AVENTIS-2012SA076225

PATIENT
  Age: 67 Year
  Sex: Female
  Weight: 67 kg

DRUGS (5)
  1. LANTUS SOLOSTAR [Suspect]
     Indication: TYPE II DIABETES MELLITUS
     Dosage: Dose:20 unit(s)
     Route: 058
     Dates: start: 201008
  2. LANTUS SOLOSTAR [Suspect]
     Indication: TYPE II DIABETES MELLITUS
     Dosage: Dose:20 unit(s)
     Route: 058
     Dates: start: 201008
  3. LANTUS SOLOSTAR [Suspect]
     Indication: TYPE II DIABETES MELLITUS
     Dosage: Dose:20 unit(s)
     Route: 058
     Dates: start: 201008
  4. SOLOSTAR [Suspect]
     Indication: TYPE II DIABETES MELLITUS
     Dates: start: 201008
  5. SOLOSTAR [Suspect]
     Indication: TYPE II DIABETES MELLITUS
     Dates: start: 201008

REACTIONS (4)
  - Colitis ulcerative [Recovered/Resolved]
  - Blood glucose increased [Recovered/Resolved]
  - Blood glucose increased [Not Recovered/Not Resolved]
  - Incorrect storage of drug [Not Recovered/Not Resolved]
